FAERS Safety Report 7762293-2 (Version None)
Quarter: 2011Q3

REPORT INFORMATION
  Report Type: 
  Country: None (occurrence: None)
  Receive Date: 20110920
  Receipt Date: 20110913
  Transmission Date: 20111222
  Serious: Yes (Death, Other)
  Sender: FDA-Public Use
  Company Number: IT-CELGENEUS-083-21880-11082988

PATIENT
  Sex: Female

DRUGS (2)
  1. REVLIMID [Suspect]
     Indication: MULTIPLE MYELOMA
     Dosage: 10 MILLIGRAM
     Route: 048
     Dates: start: 20100802, end: 20101103
  2. DEXAMETHASONE SODIUM PHOSPHATE [Concomitant]
     Dosage: 20 MILLIGRAM
     Route: 048
     Dates: start: 20101025, end: 20101028

REACTIONS (1)
  - MULTIPLE MYELOMA [None]
